FAERS Safety Report 21853870 (Version 1)
Quarter: 2023Q1

REPORT INFORMATION
  Report Type: Spontaneous
  Country: US (occurrence: None)
  Receive Date: 20230111
  Receipt Date: 20230111
  Transmission Date: 20230417
  Serious: No
  Sender: FDA-Public Use
  Company Number: None

PATIENT
  Sex: 0

DRUGS (1)
  1. XYREM [Suspect]
     Active Substance: SODIUM OXYBATE

REACTIONS (2)
  - Drug ineffective [None]
  - Nausea [None]
